FAERS Safety Report 14393398 (Version 1)
Quarter: 2018Q1

REPORT INFORMATION
  Report Type: Spontaneous
  Country: GB (occurrence: GB)
  Receive Date: 20180116
  Receipt Date: 20180116
  Transmission Date: 20180509
  Serious: Yes (Other)
  Sender: FDA-Public Use
  Company Number: GB-TEVA-2018-GB-844860

PATIENT
  Age: 23 Year
  Sex: Female
  Weight: 107 kg

DRUGS (2)
  1. PROMETHAZINE HYDROCHLORIDE. [Suspect]
     Active Substance: PROMETHAZINE HYDROCHLORIDE
     Indication: HYPNOTHERAPY
     Dosage: HALF TO ONE AT NIGHT
     Route: 048
     Dates: start: 20171129, end: 20171129
  2. SERTRALINE [Concomitant]
     Active Substance: SERTRALINE HYDROCHLORIDE
     Dates: start: 20171129

REACTIONS (4)
  - Lip swelling [Recovered/Resolved]
  - Drug hypersensitivity [Recovered/Resolved]
  - Burning sensation [Recovered/Resolved]
  - Paraesthesia [Recovered/Resolved]

NARRATIVE: CASE EVENT DATE: 20171129
